APPROVED DRUG PRODUCT: ZOLMITRIPTAN
Active Ingredient: ZOLMITRIPTAN
Strength: 2.5MG
Dosage Form/Route: TABLET;ORAL
Application: A204284 | Product #001
Applicant: INVAGEN PHARMACEUTICALS INC
Approved: Apr 9, 2014 | RLD: No | RS: No | Type: DISCN